FAERS Safety Report 5233066-X (Version None)
Quarter: 2007Q1

REPORT INFORMATION
  Report Type: 
  Country: None (occurrence: None)
  Receive Date: 20061204
  Receipt Date: 20060928
  Transmission Date: 20070707
  Serious: No
  Sender: FDA-Public Use
  Company Number: 2006-BP-11492BP

PATIENT
  Age: 86 Year
  Sex: Female

DRUGS (5)
  1. SPIRIVA [Suspect]
     Indication: CHRONIC OBSTRUCTIVE PULMONARY DISEASE
     Dosage: 18 MCG (18 MCG,1 IN 1 D),IH
     Dates: start: 20060815
  2. NORVASC [Concomitant]
  3. LISINOPRIL [Concomitant]
  4. DOXAZOSIN (DOXAZOSIN) [Concomitant]
  5. ALBUTEROL [Concomitant]

REACTIONS (2)
  - DYSPEPSIA [None]
  - GLOSSODYNIA [None]
